FAERS Safety Report 14700387 (Version 1)
Quarter: 2018Q1

REPORT INFORMATION
  Report Type: Spontaneous
  Country: US (occurrence: US)
  Receive Date: 20180330
  Receipt Date: 20180330
  Transmission Date: 20180509
  Serious: Yes (Other)
  Sender: FDA-Public Use
  Company Number: US-JNJFOC-20180333391

PATIENT
  Sex: Male

DRUGS (2)
  1. KETOCONAZOLE. [Suspect]
     Active Substance: KETOCONAZOLE
     Indication: SKIN EXFOLIATION
     Dosage: USED ONLY 3 TIMES
     Route: 061
     Dates: start: 201802, end: 201802
  2. KETOCONAZOLE. [Suspect]
     Active Substance: KETOCONAZOLE
     Indication: SKIN EXFOLIATION
     Dosage: USED ONLY 3 TIMES
     Route: 061
     Dates: start: 201803, end: 201803

REACTIONS (5)
  - Skin exfoliation [Unknown]
  - Blister [Recovering/Resolving]
  - Inappropriate schedule of drug administration [Unknown]
  - Skin haemorrhage [Recovering/Resolving]
  - Off label use [Unknown]

NARRATIVE: CASE EVENT DATE: 2018
